FAERS Safety Report 6430406-0 (Version None)
Quarter: 2009Q4

REPORT INFORMATION
  Report Type: 
  Country: None (occurrence: None)
  Receive Date: 20091106
  Receipt Date: 20091026
  Transmission Date: 20100525
  Serious: Yes (Disabling)
  Sender: FDA-Public Use
  Company Number: JP-ELI_LILLY_AND_COMPANY-JP200909004172

PATIENT
  Age: 57 Year
  Sex: Male
  Weight: 48 kg

DRUGS (6)
  1. PEMETREXED [Suspect]
     Indication: LUNG ADENOCARCINOMA RECURRENT
     Dosage: 500 MG, OTHER
     Route: 042
     Dates: start: 20090908, end: 20090908
  2. PANVITAN [Concomitant]
     Dosage: 1 G, DAILY (1/D)
     Route: 048
     Dates: start: 20090829, end: 20090911
  3. HYDROXOCOBALAMIN ACETATE [Concomitant]
     Dosage: 1 MG, UNK
     Route: 030
     Dates: start: 20090829, end: 20090829
  4. OXYCONTIN [Concomitant]
     Indication: CANCER PAIN
     Dosage: UNK, UNK
     Route: 048
     Dates: start: 20090828, end: 20090911
  5. DECADRON /00016002/ [Concomitant]
     Indication: PROPHYLAXIS
     Dates: start: 20090906, end: 20090914
  6. HALCION [Concomitant]
     Indication: INSOMNIA
     Route: 048
     Dates: start: 20090909, end: 20090911

REACTIONS (1)
  - CEREBRAL INFARCTION [None]
